FAERS Safety Report 8012991-0 (Version None)
Quarter: 2011Q4

REPORT INFORMATION
  Report Type: 
  Country: None (occurrence: None)
  Receive Date: 20111229
  Receipt Date: 20111227
  Transmission Date: 20120403
  Serious: Yes (Death)
  Sender: FDA-Public Use
  Company Number: MY-B.I. PHARMACEUTICALS,INC./RIDGEFIELD-2011-CS-01196MD

PATIENT
  Age: 74 Year
  Sex: Male

DRUGS (6)
  1. DONEPRIL [Concomitant]
  2. ATORVASTATIN [Concomitant]
  3. PRADAXA [Suspect]
     Indication: CEREBROVASCULAR ACCIDENT PROPHYLAXIS
     Dosage: 220 MG
     Route: 048
     Dates: start: 20110802
  4. TAMSULOSIN HCL [Concomitant]
  5. ESOMEPRAZOLE [Concomitant]
  6. METOPROLOL SUCCINATE [Concomitant]

REACTIONS (1)
  - ISCHAEMIC STROKE [None]
